FAERS Safety Report 10410009 (Version 2)
Quarter: 2014Q3

REPORT INFORMATION
  Report Type: Report from Study
  Country: BR (occurrence: BR)
  Receive Date: 20140826
  Receipt Date: 20140908
  Transmission Date: 20150326
  Serious: Yes (Other)
  Sender: FDA-Public Use
  Company Number: BR-SA-2014SA111555

PATIENT
  Age: 78 Year
  Sex: Female
  Weight: 68 kg

DRUGS (6)
  1. NIFELAT L [Concomitant]
     Indication: CARDIAC DISORDER
     Dosage: 10/25MG
     Route: 048
     Dates: start: 201406
  2. LANTUS [Suspect]
     Active Substance: INSULIN GLARGINE
     Indication: TYPE 2 DIABETES MELLITUS
     Route: 058
     Dates: start: 2005
  3. GALVUS [Concomitant]
     Active Substance: VILDAGLIPTIN
     Indication: DIABETES MELLITUS
     Dosage: 50/1000MG
     Route: 048
     Dates: start: 2010
  4. DEVICE NOS [Concomitant]
     Active Substance: DEVICE
  5. LANTUS [Suspect]
     Active Substance: INSULIN GLARGINE
     Indication: TYPE 2 DIABETES MELLITUS
     Route: 058
     Dates: start: 2005
  6. NATRILIX [Concomitant]
     Active Substance: INDAPAMIDE
     Indication: CARDIAC DISORDER
     Route: 048
     Dates: start: 2010

REACTIONS (7)
  - Off label use [Unknown]
  - Visual impairment [Not Recovered/Not Resolved]
  - Hypertension [Recovered/Resolved]
  - Cataract [Not Recovered/Not Resolved]
  - Application site discolouration [Recovered/Resolved]
  - Dizziness [Recovered/Resolved]
  - Gait disturbance [Not Recovered/Not Resolved]

NARRATIVE: CASE EVENT DATE: 2005
